FAERS Safety Report 5242155-5 (Version None)
Quarter: 2007Q1

REPORT INFORMATION
  Report Type: 
  Country: None (occurrence: None)
  Receive Date: 20070213
  Receipt Date: 20070202
  Transmission Date: 20070707
  Serious: Yes (Other)
  Sender: FDA-Public Use
  Company Number: GXKR2007US01347

PATIENT
  Age: 65 Year
  Sex: Female

DRUGS (7)
  1. HYDROXYCHLOROQUINE SULFATE [Suspect]
     Indication: MUSCULOSKELETAL PAIN
     Dosage: 400 MG QD
  2. INDOMETHACIN [Concomitant]
  3. ALENDRONATE SODIUM [Concomitant]
  4. CALCIUM (CALCIUM) [Concomitant]
  5. LANSOPRAZOLE [Concomitant]
  6. DOCUSATE SODIUM (DOCUSATE SODIUM) [Concomitant]
  7. DILTIAZEM [Concomitant]

REACTIONS (4)
  - MARROW HYPERPLASIA [None]
  - MYELODYSPLASTIC SYNDROME [None]
  - REFRACTORY ANAEMIA WITH RINGED SIDEROBLASTS [None]
  - THROMBOCYTOPENIA [None]
